FAERS Safety Report 23242362 (Version 2)
Quarter: 2024Q1

REPORT INFORMATION
  Report Type: Report from Study
  Country: PT (occurrence: PT)
  Receive Date: 20231129
  Receipt Date: 20240308
  Transmission Date: 20240410
  Serious: Yes (Other)
  Sender: FDA-Public Use
  Company Number: PT-ABBVIE-5515863

PATIENT
  Age: 62 Year
  Sex: Male

DRUGS (9)
  1. CARBIDOPA\LEVODOPA [Suspect]
     Active Substance: CARBIDOPA\LEVODOPA
     Indication: Parkinson^s disease
     Dosage: 20 MG + 5 MG MORNIN:12CC;MAINT:3.3CC/H;EXTRA:1.5CC
     Route: 050
     Dates: start: 20210826
  2. CARBIDOPA\LEVODOPA [Suspect]
     Active Substance: CARBIDOPA\LEVODOPA
     Dosage: 20 MG + 5 MG
     Route: 050
  3. SERTRALINE [Concomitant]
     Active Substance: SERTRALINE HYDROCHLORIDE
     Indication: Product used for unknown indication
     Route: 048
  4. SERTRALINE [Concomitant]
     Active Substance: SERTRALINE HYDROCHLORIDE
     Indication: Product used for unknown indication
     Route: 048
     Dates: start: 202311, end: 202311
  5. BENSERAZIDE HYDROCHLORIDE\LEVODOPA [Concomitant]
     Active Substance: BENSERAZIDE HYDROCHLORIDE\LEVODOPA
     Indication: Product used for unknown indication
     Dosage: START DATE TEXT: BEFORE DUODOPA?STOP DATE TEXT: ONGOING
  6. Zepacla (Clonazepam) [Concomitant]
     Indication: Product used for unknown indication
     Dosage: STOP DATE TEXT: BEFORE DUODOPA?STOP DATE TEXT: ONGOING
  7. Parkadina (amantadine hydrochloride) [Concomitant]
     Indication: Product used for unknown indication
     Dosage: FREQUENCY TEXT: 7 AM AND LUNCH?START DATE TEXT: BEFORE DUODOPA?STOP DATE TEXT: ONGOING
  8. CLOZAPINE [Concomitant]
     Active Substance: CLOZAPINE
     Indication: Product used for unknown indication
     Dosage: FREQUENCY TEXT: 7AM, LUNCH, DINNER AND BEDTIME? START DATE TEXT: BEFORE DUODOPA?STOP DATE TEXT: O...
  9. Elontril (bupropion) [Concomitant]
     Indication: Product used for unknown indication
     Dosage: FREQUENCY TEXT: 7AM?START DATE TEXT: BEFORE DUODOPA? STOP DATE TEXT: ONGOING

REACTIONS (2)
  - Suicidal ideation [Recovered/Resolved]
  - Depression [Recovering/Resolving]

NARRATIVE: CASE EVENT DATE: 20231101
